FAERS Safety Report 5119050-5 (Version None)
Quarter: 2006Q3

REPORT INFORMATION
  Report Type: 
  Country: None (occurrence: None)
  Receive Date: 20060927
  Receipt Date: 20060914
  Transmission Date: 20061208
  Serious: Yes (Hospitalization, Other)
  Sender: FDA-Public Use
  Company Number: 2006095205

PATIENT
  Age: 37 Year
  Sex: Female
  Weight: 101.6057 kg

DRUGS (13)
  1. DILANTIN [Suspect]
     Indication: CONVULSION
     Dosage: ORAL
     Route: 048
     Dates: start: 20040201, end: 20041001
  2. NEURONTIN [Suspect]
     Indication: CONVULSION
     Dosage: 3600 MG (600 MG, 4 IN 1 D), ORAL
     Route: 048
  3. SOLU-MEDROL [Suspect]
     Indication: RASH
     Dosage: INTRAVENOUS
     Route: 042
     Dates: start: 20040930
  4. XANAX [Suspect]
     Dates: start: 20041001
  5. DEPAKOTE [Suspect]
     Indication: CONVULSION
     Dosage: 1500 MG (500 MG, 3 IN 1 D), ORAL
     Route: 048
     Dates: start: 20040901, end: 20041001
  6. ELAVIL [Suspect]
     Dates: start: 20041001
  7. BEXTRA [Concomitant]
  8. TRAZODONE HCL [Concomitant]
  9. KLONOPIN [Concomitant]
  10. EFFEXOR XR [Concomitant]
  11. ROBAXIN [Concomitant]
  12. PREMARIN [Concomitant]
  13. LEVAQUIN [Concomitant]

REACTIONS (10)
  - ALCOHOL USE [None]
  - ANTICONVULSANT DRUG LEVEL DECREASED [None]
  - CONVERSION DISORDER [None]
  - DEPRESSION [None]
  - ERYTHEMA MULTIFORME [None]
  - FACE OEDEMA [None]
  - GLUCOSE TOLERANCE IMPAIRED [None]
  - PAIN [None]
  - SUBSTANCE ABUSE [None]
  - SUICIDAL IDEATION [None]
